FAERS Safety Report 5042489-3 (Version None)
Quarter: 2006Q2

REPORT INFORMATION
  Report Type: 
  Country: None (occurrence: None)
  Receive Date: 20060627
  Receipt Date: 20060609
  Transmission Date: 20061013
  Serious: Yes (Hospitalization)
  Sender: FDA-Public Use
  Company Number: 2006RR-02592

PATIENT
  Age: 61 Year
  Sex: Female

DRUGS (2)
  1. METFORMIN HCL [Suspect]
     Indication: DIABETES MELLITUS
     Dosage: 3 G
  2. FLUVASTATIN(FLUVASTATIN) [Suspect]
     Dosage: 80 MG, QD

REACTIONS (5)
  - MEDICATION ERROR [None]
  - METABOLIC ACIDOSIS [None]
  - OLIGURIA [None]
  - OVERDOSE [None]
  - PANCREATITIS ACUTE [None]
